FAERS Safety Report 6027271-2 (Version None)
Quarter: 2009Q1

REPORT INFORMATION
  Report Type: 
  Country: None (occurrence: None)
  Receive Date: 20090102
  Receipt Date: 20090102
  Transmission Date: 20090719
  Serious: Yes (Other)
  Sender: FDA-Public Use
  Company Number: None

PATIENT
  Age: 76 Year
  Sex: Female
  Weight: 131.0895 kg

DRUGS (1)
  1. LOVENOX [Suspect]
     Indication: EMBOLISM
     Dosage: 110MG REDUCED FROM 120MG BID SUBDERMAL
     Route: 059
     Dates: start: 20080911, end: 20080911

REACTIONS (1)
  - MEDICATION ERROR [None]
